FAERS Safety Report 14119291 (Version 1)
Quarter: 2017Q4

REPORT INFORMATION
  Report Type: Spontaneous
  Country: US (occurrence: US)
  Receive Date: 20171024
  Receipt Date: 20171024
  Transmission Date: 20180321
  Serious: No
  Sender: FDA-Public Use
  Company Number: US-PFIZER INC-2017455025

PATIENT
  Age: 90 Year
  Sex: Male
  Weight: 63.5 kg

DRUGS (10)
  1. ADVAIR HFA [Concomitant]
     Active Substance: FLUTICASONE PROPIONATE\SALMETEROL XINAFOATE
     Indication: ASTHMA
     Dosage: UNK
  2. CENTRUM [Concomitant]
     Active Substance: VITAMINS
     Indication: BONE DISORDER
     Dosage: 1 DF, 1X/DAY
     Route: 048
  3. ADVIL PM [Suspect]
     Active Substance: DIPHENHYDRAMINE CITRATE\IBUPROFEN
     Indication: SLEEP DISORDER
     Dosage: [IBUPROFEN 200MG]/[DIPHENHYDRAMINE CITRATE 25MG], 2 CAPLETS AT NIGHT AS NEEDED BY MOUTH
     Route: 048
  4. GLUCOSAMINE + CHONDROITIN [Concomitant]
     Indication: BONE DISORDER
     Dosage: 1200 MG, 1X/DAY
     Route: 048
  5. METFORMIN [Concomitant]
     Active Substance: METFORMIN HYDROCHLORIDE
     Indication: BLOOD CHOLESTEROL ABNORMAL
     Dosage: 500 MG, 2X/DAY
  6. ADVIL [Concomitant]
     Active Substance: IBUPROFEN
     Indication: INTERVERTEBRAL DISC DEGENERATION
     Dosage: 200 MG, 1X/DAY
     Route: 048
  7. FLUTICASONE PROPIONATE. [Concomitant]
     Active Substance: FLUTICASONE PROPIONATE
     Indication: HYPERSENSITIVITY
     Dosage: 2 SPRAYS, EACH NOSTRIL, ONE TIME A DAY
  8. AMLODIPINE [Concomitant]
     Active Substance: AMLODIPINE BESYLATE
     Indication: BLOOD PRESSURE ABNORMAL
     Dosage: 10 MG, 1X/DAY
     Route: 048
  9. BRIMONIDINE TARTRATE. [Concomitant]
     Active Substance: BRIMONIDINE TARTRATE
     Indication: GLAUCOMA
     Dosage: 1 DROP IN BOTH EYES TWICE DAY
  10. CHONDROITIN [Concomitant]
     Active Substance: CHONDROITIN
     Dosage: 1200 MG, 1X/DAY

REACTIONS (3)
  - Feeling abnormal [Recovered/Resolved]
  - Intentional product misuse [Unknown]
  - Insomnia [Recovered/Resolved]

NARRATIVE: CASE EVENT DATE: 20171018
